FAERS Safety Report 22170557 (Version 1)
Quarter: 2023Q2

REPORT INFORMATION
  Report Type: Spontaneous
  Country: FR (occurrence: FR)
  Receive Date: 20230404
  Receipt Date: 20230404
  Transmission Date: 20230722
  Serious: Yes (Hospitalization, Other)
  Sender: FDA-Public Use
  Company Number: FR-AFSSAPS-RE2023000297

PATIENT
  Age: 47 Year
  Sex: Male
  Weight: 75 kg

DRUGS (2)
  1. ACETAMINOPHEN [Suspect]
     Active Substance: ACETAMINOPHEN
     Indication: Poisoning deliberate
     Dosage: 16 DOSAGE FORM
     Route: 048
     Dates: start: 20230315, end: 20230315
  2. PAROXETINE [Suspect]
     Active Substance: PAROXETINE
     Indication: Poisoning deliberate
     Dosage: UNK
     Route: 048
     Dates: start: 20230315, end: 20230315

REACTIONS (4)
  - Hepatic cytolysis [Not Recovered/Not Resolved]
  - Prothrombin level decreased [Recovering/Resolving]
  - Overdose [Recovering/Resolving]
  - Anxiety [Not Recovered/Not Resolved]

NARRATIVE: CASE EVENT DATE: 20230316
